FAERS Safety Report 22646766 (Version 5)
Quarter: 2023Q4

REPORT INFORMATION
  Report Type: Spontaneous
  Country: ES (occurrence: ES)
  Receive Date: 20230627
  Receipt Date: 20231009
  Transmission Date: 20240109
  Serious: Yes (Life-Threatening, Hospitalization, Other)
  Sender: FDA-Public Use
  Company Number: ES-CIPLA (EU) LIMITED-2023ES03110

PATIENT
  Age: 10 Year
  Sex: Male

DRUGS (21)
  1. BORTEZOMIB [Suspect]
     Active Substance: BORTEZOMIB
     Indication: Nervous system disorder
     Dosage: UNK
     Route: 065
  2. BORTEZOMIB [Suspect]
     Active Substance: BORTEZOMIB
     Indication: Acute lymphocytic leukaemia
  3. BORTEZOMIB [Suspect]
     Active Substance: BORTEZOMIB
     Indication: Leukaemia recurrent
  4. BORTEZOMIB [Suspect]
     Active Substance: BORTEZOMIB
     Indication: Prophylaxis
  5. ACYCLOVIR [Concomitant]
     Active Substance: ACYCLOVIR
     Indication: Herpes dermatitis
     Dosage: UNK
     Route: 065
  6. COTRIMOXAZOLE [Concomitant]
     Active Substance: SULFAMETHOXAZOLE\TRIMETHOPRIM
     Indication: Prophylaxis
     Dosage: UNK
     Route: 065
  7. COTRIMOXAZOLE [Concomitant]
     Active Substance: SULFAMETHOXAZOLE\TRIMETHOPRIM
     Indication: Neutropenia
  8. FLUCONAZOLE [Concomitant]
     Active Substance: FLUCONAZOLE
     Indication: Prophylaxis
     Dosage: UNK
     Route: 065
  9. FLUCONAZOLE [Concomitant]
     Active Substance: FLUCONAZOLE
     Indication: Neutropenia
  10. CEFEPIME [Concomitant]
     Active Substance: CEFEPIME HYDROCHLORIDE
     Indication: Prophylaxis
     Dosage: UNK
     Route: 065
  11. CEFEPIME [Concomitant]
     Active Substance: CEFEPIME HYDROCHLORIDE
     Indication: Neutropenia
  12. MEROPENEM [Concomitant]
     Active Substance: MEROPENEM
     Indication: Bacillus infection
     Dosage: UNK
     Route: 065
  13. MEROPENEM [Concomitant]
     Active Substance: MEROPENEM
     Indication: Abscess
  14. MEROPENEM [Concomitant]
     Active Substance: MEROPENEM
     Indication: Herpes simplex
  15. VANCOMYCIN [Concomitant]
     Active Substance: VANCOMYCIN
     Indication: Bacillus infection
     Dosage: UNK
     Route: 065
  16. VANCOMYCIN [Concomitant]
     Active Substance: VANCOMYCIN
     Indication: Abscess
  17. VANCOMYCIN [Concomitant]
     Active Substance: VANCOMYCIN
     Indication: Herpes simplex
  18. GENTAMICIN [Concomitant]
     Active Substance: GENTAMICIN
     Indication: Bacillus infection
     Dosage: UNK
     Route: 065
  19. GENTAMICIN [Concomitant]
     Active Substance: GENTAMICIN
     Indication: Abscess
  20. GENTAMICIN [Concomitant]
     Active Substance: GENTAMICIN
     Indication: Septic shock
  21. CASPOFUNGIN [Concomitant]
     Active Substance: CASPOFUNGIN
     Indication: Septic shock
     Dosage: UNK
     Route: 065

REACTIONS (13)
  - Immunosuppression [Recovering/Resolving]
  - Septic shock [Unknown]
  - Pancytopenia [Unknown]
  - Neutropenia [Unknown]
  - Headache [Recovered/Resolved]
  - Bacterial abscess central nervous system [Recovering/Resolving]
  - Brain abscess [Unknown]
  - Abscess bacterial [Recovering/Resolving]
  - Bacillus infection [Unknown]
  - Off label use [Unknown]
  - Procalcitonin increased [Unknown]
  - Herpes dermatitis [Unknown]
  - C-reactive protein increased [Unknown]
